FAERS Safety Report 7037608-3 (Version None)
Quarter: 2010Q4

REPORT INFORMATION
  Report Type: 
  Country: None (occurrence: None)
  Receive Date: 20101011
  Receipt Date: 20100928
  Transmission Date: 20110411
  Serious: Yes (Other)
  Sender: FDA-Public Use
  Company Number: PHHY2010DE65026

PATIENT
  Sex: Female
  Weight: 55 kg

DRUGS (2)
  1. FEMARA [Suspect]
     Indication: BREAST CANCER
     Dosage: 2.5 MG/DAY
     Route: 048
     Dates: start: 20080404
  2. MISTLE TOE [Concomitant]
     Dosage: 3 TIMES WEEKLY
     Route: 058
     Dates: start: 20080701

REACTIONS (5)
  - BREAST OPERATION [None]
  - FALL [None]
  - HOT FLUSH [None]
  - HYPERHIDROSIS [None]
  - UPPER LIMB FRACTURE [None]
